FAERS Safety Report 7206084-X (Version None)
Quarter: 2010Q4

REPORT INFORMATION
  Report Type: 
  Country: None (occurrence: None)
  Receive Date: 20101229
  Receipt Date: 20101229
  Transmission Date: 20110411
  Serious: Yes (Other)
  Sender: FDA-Public Use
  Company Number: None

PATIENT
  Age: 40 Year
  Sex: Female
  Weight: 127.0072 kg

DRUGS (1)
  1. HYDROCODONE-CHLORPHENIRAME SUSP NONE GIVEN PAR PHARM [Suspect]
     Dosage: 1 TSP EVERY 12 HOURS PO
     Route: 048

REACTIONS (2)
  - DRUG DISPENSING ERROR [None]
  - PRODUCT SUBSTITUTION ISSUE [None]
